FAERS Safety Report 22241247 (Version 3)
Quarter: 2023Q2

REPORT INFORMATION
  Report Type: Report from Study
  Country: FR (occurrence: FR)
  Receive Date: 20230421
  Receipt Date: 20230614
  Transmission Date: 20230721
  Serious: Yes (Hospitalization)
  Sender: FDA-Public Use
  Company Number: FR-002147023-NVSC2023FR086357

PATIENT
  Sex: Female
  Weight: 58 kg

DRUGS (4)
  1. VIJOICE [Suspect]
     Active Substance: ALPELISIB
     Indication: Vascular malformation
     Dosage: 125 MG, BID
     Route: 048
     Dates: start: 20230318, end: 20230328
  2. ROSUVASTATIN [Concomitant]
     Active Substance: ROSUVASTATIN
     Indication: Hypercholesterolaemia
     Dosage: 5 MG
     Route: 048
     Dates: start: 20150101
  3. GABAPENTIN [Concomitant]
     Active Substance: GABAPENTIN
     Indication: Neuralgia
     Dosage: 1200 MG, TID
     Route: 048
     Dates: start: 20190809
  4. DULOXETINE [Concomitant]
     Active Substance: DULOXETINE
     Indication: Neuralgia
     Dosage: 120 MG
     Route: 048
     Dates: start: 20190809

REACTIONS (4)
  - Rash maculo-papular [Recovered/Resolved]
  - Toxic skin eruption [Recovered/Resolved]
  - Headache [Recovering/Resolving]
  - Hyperthermia [Unknown]

NARRATIVE: CASE EVENT DATE: 20230320
